FAERS Safety Report 12242625 (Version 4)
Quarter: 2016Q4

REPORT INFORMATION
  Report Type: Report from Study
  Country: FR (occurrence: FR)
  Receive Date: 20160406
  Receipt Date: 20161221
  Transmission Date: 20170207
  Serious: Yes (Hospitalization, Other)
  Sender: FDA-Public Use
  Company Number: FR-BRISTOL-MYERS SQUIBB COMPANY-BMS-2016-023303

PATIENT
  Age: 31 Year
  Sex: Male
  Weight: 65 kg

DRUGS (2)
  1. MYCOPHENOLATE MOFETIL. [Concomitant]
     Active Substance: MYCOPHENOLATE MOFETIL
     Indication: PROPHYLAXIS
     Dosage: 2000 MG, QD
     Route: 048
     Dates: start: 20160130
  2. BELATACEPT [Suspect]
     Active Substance: BELATACEPT
     Indication: IMMUNOSUPPRESSION
     Dosage: 315 MG, QD
     Route: 042
     Dates: start: 20160131

REACTIONS (5)
  - Urinoma [Not Recovered/Not Resolved]
  - Vesicoureteral reflux surgery [Recovered/Resolved]
  - Influenza B virus test positive [Recovered/Resolved]
  - Renal graft infection [Recovered/Resolved]
  - Acute kidney injury [Recovered/Resolved]

NARRATIVE: CASE EVENT DATE: 20160207
